FAERS Safety Report 8723778 (Version 2)
Quarter: 2013Q4

REPORT INFORMATION
  Report Type: Spontaneous
  Country: US (occurrence: US)
  Receive Date: 20120815
  Receipt Date: 20131101
  Transmission Date: 20140711
  Serious: No
  Sender: FDA-Public Use
  Company Number: US-009507513-1208USA001581

PATIENT
  Sex: Male

DRUGS (6)
  1. VICTRELIS [Suspect]
     Indication: HEPATITIS C
     Dosage: 800 MG, Q8H
     Route: 048
     Dates: start: 201202
  2. PEGASYS [Suspect]
     Dosage: 180 MICROGRAM, QW
  3. PEGASYS [Suspect]
     Dosage: 90 MICROGRAM, QW
  4. RIBASPHERE [Suspect]
  5. PROCRIT [Concomitant]
  6. CHLOROQUINE PHOSPHATE [Concomitant]

REACTIONS (1)
  - Platelet count decreased [Unknown]
